FAERS Safety Report 10159544 (Version 1)
Quarter: 2014Q2

REPORT INFORMATION
  Report Type: Spontaneous
  Country: GB (occurrence: GB)
  Receive Date: 20140508
  Receipt Date: 20140508
  Transmission Date: 20141212
  Serious: Yes (Hospitalization)
  Sender: FDA-Public Use
  Company Number: GB-ASTRAZENECA-2014SE29944

PATIENT
  Age: 50 Year
  Sex: Female

DRUGS (14)
  1. LISINOPRIL [Suspect]
     Indication: HYPERTENSION
     Route: 048
     Dates: end: 20140420
  2. ALFACALCIDOL [Concomitant]
  3. AMITRIPTYLINE [Concomitant]
  4. AMLODIPINE [Concomitant]
  5. ASPIRIN [Concomitant]
  6. DIPYRIDAMOLE [Concomitant]
  7. DOXAZOSIN [Concomitant]
  8. LABETALOL [Concomitant]
  9. LANTHANUM [Concomitant]
  10. MIRTAZAPINE [Concomitant]
  11. QUETIAPINE [Concomitant]
  12. RANITIDINE [Concomitant]
  13. SENNA [Concomitant]
  14. SIMVASTATIN [Concomitant]

REACTIONS (2)
  - Local swelling [Recovered/Resolved]
  - Angioedema [Recovered/Resolved]
